FAERS Safety Report 20070404 (Version 3)
Quarter: 2021Q4

REPORT INFORMATION
  Report Type: Spontaneous
  Country: TH (occurrence: TH)
  Receive Date: 20211115
  Receipt Date: 20211125
  Transmission Date: 20220303
  Serious: Yes (Other)
  Sender: FDA-Public Use
  Company Number: TH-NOVARTISPH-NVSC2021TH256345

PATIENT
  Age: 70 Year
  Sex: Male

DRUGS (1)
  1. SACUBITRIL\VALSARTAN [Suspect]
     Active Substance: SACUBITRIL\VALSARTAN
     Indication: Product used for unknown indication
     Dosage: UNK
     Route: 065

REACTIONS (5)
  - Ventricular tachycardia [Unknown]
  - Cardiac failure chronic [Unknown]
  - Device pacing issue [Unknown]
  - Ejection fraction decreased [Unknown]
  - N-terminal prohormone brain natriuretic peptide increased [Unknown]
